FAERS Safety Report 13562125 (Version 3)
Quarter: 2018Q2

REPORT INFORMATION
  Report Type: Spontaneous
  Country: US (occurrence: US)
  Receive Date: 20170519
  Receipt Date: 20180627
  Transmission Date: 20180711
  Serious: Yes (Disabling, Other)
  Sender: FDA-Public Use
  Company Number: US-ASTRAZENECA-2017SE51215

PATIENT
  Age: 17822 Day
  Sex: Male
  Weight: 136.1 kg

DRUGS (31)
  1. NEXIUM [Suspect]
     Active Substance: ESOMEPRAZOLE MAGNESIUM
     Indication: HIATUS HERNIA
     Dosage: 40 MG
     Route: 048
     Dates: start: 2004, end: 2016
  2. TUMS [Concomitant]
     Active Substance: CALCIUM CARBONATE
     Dosage: 2/DAY
     Route: 065
     Dates: start: 1998
  3. ALUPENT [Concomitant]
     Active Substance: METAPROTERENOL SULFATE
     Route: 045
  4. FLUCONAZOLE. [Concomitant]
     Active Substance: FLUCONAZOLE
     Route: 048
  5. ANUCORT [Concomitant]
     Dosage: 25 MG INSERT 1 SUPPOSITORY
     Route: 054
  6. SINGULAIR [Concomitant]
     Active Substance: MONTELUKAST SODIUM
     Route: 048
  7. PRILOSEC [Suspect]
     Active Substance: OMEPRAZOLE MAGNESIUM
     Indication: HIATUS HERNIA
     Route: 048
     Dates: start: 2002, end: 2004
  8. ALLOPURINOL. [Concomitant]
     Active Substance: ALLOPURINOL
  9. ZYRTEC [Concomitant]
     Active Substance: CETIRIZINE HYDROCHLORIDE
     Route: 048
  10. BETAMETHASONE. [Concomitant]
     Active Substance: BETAMETHASONE
     Dosage: APPLY TWO TIMES A DAY
     Route: 065
  11. NEXIUM [Suspect]
     Active Substance: ESOMEPRAZOLE MAGNESIUM
     Indication: HIATUS HERNIA
     Route: 048
     Dates: start: 20040626
  12. METHYLPREDNISOLONE. [Concomitant]
     Active Substance: METHYLPREDNISOLONE
     Dosage: 4 MG
     Route: 065
  13. PRILOSEC [Suspect]
     Active Substance: OMEPRAZOLE MAGNESIUM
     Indication: HIATUS HERNIA
     Route: 048
     Dates: start: 1998, end: 2002
  14. PROTONIX [Suspect]
     Active Substance: PANTOPRAZOLE SODIUM
     Route: 065
     Dates: start: 1998, end: 2002
  15. LANTUS [Concomitant]
     Active Substance: INSULIN GLARGINE
     Indication: DIABETES MELLITUS
  16. AVANDAMET [Concomitant]
     Active Substance: METFORMIN HYDROCHLORIDE\ROSIGLITAZONE MALEATE
     Route: 048
  17. METRONIDAZOLE. [Concomitant]
     Active Substance: METRONIDAZOLE
     Route: 048
  18. HUMALOG [Concomitant]
     Active Substance: INSULIN LISPRO
     Indication: DIABETES MELLITUS
  19. AVELOX [Concomitant]
     Active Substance: MOXIFLOXACIN HYDROCHLORIDE
     Route: 048
  20. PNEUMOTUSSIN [Concomitant]
     Dosage: 2 TEASPOONFUL 2.5 EVERY DAY
     Route: 048
  21. PROTONIX [Suspect]
     Active Substance: PANTOPRAZOLE SODIUM
     Route: 065
     Dates: start: 2002, end: 2004
  22. PHENTERMINE. [Concomitant]
     Active Substance: PHENTERMINE
     Route: 048
  23. BENAZEPRIL [Concomitant]
     Active Substance: BENAZEPRIL HYDROCHLORIDE
     Dosage: 20/12.5 DAILY
     Route: 048
  24. METFORMIN HYDROCHLORIDE. [Concomitant]
     Active Substance: METFORMIN HYDROCHLORIDE
     Route: 048
  25. LOTENSIN HCT [Concomitant]
     Active Substance: BENAZEPRIL HYDROCHLORIDE\HYDROCHLOROTHIAZIDE
     Dosage: 20/12.5 1 TABLET BY MOUTH ONCE DAILY
     Route: 048
  26. AVANDIA [Concomitant]
     Active Substance: ROSIGLITAZONE MALEATE
     Route: 048
  27. BISACODYL. [Concomitant]
     Active Substance: BISACODYL
     Dosage: 5 MG TABLET
     Route: 048
  28. DEXPAK [Concomitant]
     Active Substance: DEXAMETHASONE
     Dosage: 1.5 MG
     Route: 048
  29. PEPTO-BISMOL [Concomitant]
     Active Substance: BISMUTH SUBSALICYLATE
     Indication: GOUT
     Dosage: WHEN NEEDED
     Route: 065
     Dates: start: 1996
  30. BONTRIL [Concomitant]
     Active Substance: PHENDIMETRAZINE TARTRATE
     Dosage: 105 MG
     Route: 048
  31. ALPRAZOLAM. [Concomitant]
     Active Substance: ALPRAZOLAM
     Route: 048

REACTIONS (6)
  - Acute kidney injury [Unknown]
  - Clostridium difficile infection [Unknown]
  - Chronic kidney disease [Unknown]
  - Renal failure [Unknown]
  - Diabetic neuropathy [Unknown]
  - Renal impairment [Not Recovered/Not Resolved]

NARRATIVE: CASE EVENT DATE: 20140511
